FAERS Safety Report 8568516 (Version 4)
Quarter: 2013Q3

REPORT INFORMATION
  Report Type: Spontaneous
  Country: US (occurrence: US)
  Receive Date: 20120518
  Receipt Date: 20130822
  Transmission Date: 20140515
  Serious: Yes (Other)
  Sender: FDA-Public Use
  Company Number: US-GENZYME-FABR-1002507

PATIENT
  Age: 63 Year
  Sex: Male
  Weight: 82 kg

DRUGS (5)
  1. FABRAZYME [Suspect]
     Indication: FABRY^S DISEASE
     Dosage: 1 MG/KG, Q2W
     Route: 042
     Dates: start: 20050823
  2. LISINOPRIL [Concomitant]
     Indication: PRODUCT USED FOR UNKNOWN INDICATION
     Dosage: UNK
     Route: 065
  3. PLAVIX [Concomitant]
     Indication: PRODUCT USED FOR UNKNOWN INDICATION
     Dosage: UNK
     Route: 065
  4. CARVEDILOL [Concomitant]
     Indication: PRODUCT USED FOR UNKNOWN INDICATION
     Dosage: UNK
     Route: 065
  5. COUMADIN [Concomitant]
     Indication: BLOOD DISORDER
     Dosage: UNK
     Route: 065

REACTIONS (3)
  - Migraine [Recovered/Resolved]
  - Deafness transitory [Recovered/Resolved]
  - Tinnitus [Recovered/Resolved]
